FAERS Safety Report 14195620 (Version 3)
Quarter: 2017Q4

REPORT INFORMATION
  Report Type: Spontaneous
  Country: IT (occurrence: IT)
  Receive Date: 20171116
  Receipt Date: 20171213
  Transmission Date: 20180321
  Serious: Yes (Life-Threatening, Hospitalization, Other)
  Sender: FDA-Public Use
  Company Number: IT-BRISTOL-MYERS SQUIBB COMPANY-BMS-2017-103581

PATIENT
  Age: 67 Year
  Sex: Male

DRUGS (8)
  1. TICAGRELOR. [Suspect]
     Active Substance: TICAGRELOR
     Indication: PRODUCT USED FOR UNKNOWN INDICATION
     Dosage: 90 MG, BID
     Route: 065
  2. TIROFIBAN [Concomitant]
     Active Substance: TIROFIBAN
     Indication: PRODUCT USED FOR UNKNOWN INDICATION
     Route: 065
  3. WARFARIN SODIUM. [Suspect]
     Active Substance: WARFARIN SODIUM
     Indication: ANTICOAGULANT THERAPY
     Dosage: UNK
     Route: 065
  4. ASPIRIN. [Suspect]
     Active Substance: ASPIRIN
     Indication: ANTICOAGULANT THERAPY
     Dosage: 100 MG, UNK
     Route: 065
  5. ALTEPLASE. [Concomitant]
     Active Substance: ALTEPLASE
     Indication: PRODUCT USED FOR UNKNOWN INDICATION
     Route: 065
  6. DIPYRIDAMOLE. [Suspect]
     Active Substance: DIPYRIDAMOLE
     Indication: PRODUCT USED FOR UNKNOWN INDICATION
     Dosage: 800 MG, UNK
     Route: 065
  7. HEPARIN [Concomitant]
     Active Substance: HEPARIN SODIUM
     Indication: PRODUCT USED FOR UNKNOWN INDICATION
     Route: 065
  8. CLOPIDOGREL [Suspect]
     Active Substance: CLOPIDOGREL BISULFATE
     Indication: ANTICOAGULANT THERAPY
     Dosage: 75 MG, QD
     Route: 065
     Dates: start: 20141201, end: 20150401

REACTIONS (6)
  - Haemorrhage intracranial [Unknown]
  - Therapeutic response decreased [Unknown]
  - Cardiac ventricular thrombosis [Unknown]
  - Haematuria [Unknown]
  - Headache [Unknown]
  - Embolic stroke [Recovering/Resolving]
